FAERS Safety Report 5656584-9 (Version None)
Quarter: 2008Q1

REPORT INFORMATION
  Report Type: 
  Country: None (occurrence: None)
  Receive Date: 20080310
  Receipt Date: 20080226
  Transmission Date: 20080703
  Serious: Yes (Hospitalization)
  Sender: FDA-Public Use
  Company Number: PR-BAYER-200814916NA

PATIENT
  Age: 70 Year
  Sex: Female
  Weight: 64 kg

DRUGS (2)
  1. MAGNEVIST [Suspect]
     Indication: ABDOMINAL PAIN
     Route: 042
     Dates: start: 20080219, end: 20080219
  2. MEDROL [Concomitant]
     Indication: PROPHYLAXIS
     Dosage: UNIT DOSE: 32 MG
     Dates: start: 20080218, end: 20080219

REACTIONS (2)
  - INJECTION SITE PAIN [None]
  - INJECTION SITE THROMBOSIS [None]
